FAERS Safety Report 16177715 (Version 1)
Quarter: 2019Q2

REPORT INFORMATION
  Report Type: Spontaneous
  Country: US (occurrence: US)
  Receive Date: 20190306
  Receipt Date: 20190306
  Transmission Date: 20190711
  Serious: Yes (Hospitalization)
  Sender: FDA-Public Use
  Company Number: None

PATIENT
  Sex: Male

DRUGS (1)
  1. ENOXAPARIN SOD MDV 300MG/3ML WINTHROP, US [Suspect]
     Active Substance: ENOXAPARIN SODIUM
     Indication: VENTRICULAR SEPTAL DEFECT
     Route: 058
     Dates: start: 20160621

REACTIONS (1)
  - Product measured potency issue [None]
